FAERS Safety Report 13157326 (Version 1)
Quarter: 2017Q1

REPORT INFORMATION
  Report Type: Spontaneous
  Country: AT (occurrence: AT)
  Receive Date: 20170127
  Receipt Date: 20170127
  Transmission Date: 20170428
  Serious: Yes (Other)
  Sender: FDA-Public Use
  Company Number: AT-AMGEN-AUTSP2016169976

PATIENT
  Age: 53 Year
  Sex: Male
  Weight: 78 kg

DRUGS (25)
  1. VECTIBIX [Suspect]
     Active Substance: PANITUMUMAB
     Dosage: 479.4 MG, CYCLE 3 D15 FOR 1 HR
     Route: 042
     Dates: start: 20160929
  2. VECTIBIX [Suspect]
     Active Substance: PANITUMUMAB
     Dosage: 392 MG, WITH 250 ML NACL FOR 1 HR (CYCLE 5 D8)
     Route: 042
     Dates: start: 20161201
  3. VECTIBIX [Suspect]
     Active Substance: PANITUMUMAB
     Indication: ADENOCARCINOMA
     Dosage: 468 MG, CYCLE 1 D1 FOR 1 HR
     Route: 042
     Dates: start: 20160727
  4. VECTIBIX [Suspect]
     Active Substance: PANITUMUMAB
     Dosage: 397.9 MG IN 250 ML NACL FOR 1 HR (CYCLE 4 D1)
     Route: 042
     Dates: start: 20161103
  5. VECTIBIX [Suspect]
     Active Substance: PANITUMUMAB
     Dosage: 468 MG, CYCLE 3 D1 FOR 1 HR
     Route: 042
     Dates: start: 20160915
  6. XELODA [Suspect]
     Active Substance: CAPECITABINE
     Indication: ADENOCARCINOMA
     Dosage: 500 MG, 4-0-4 D1 TO D14
     Route: 048
  7. OXALIPLATIN. [Suspect]
     Active Substance: OXALIPLATIN
     Dosage: 258 MG, 500 GLUC 5 % FOR 3 HR
     Route: 042
     Dates: start: 20161215
  8. ZOFRAN [Concomitant]
     Active Substance: ONDANSETRON HYDROCHLORIDE
     Dosage: 8 MG, DAY2 TO DAY 5
     Route: 048
  9. DIBONDRIN [Concomitant]
     Active Substance: DIPHENHYDRAMINE HYDROCHLORIDE
     Dosage: UNK, BEFORE VECTIBIX
     Route: 042
  10. FORTECORTIN [Concomitant]
     Active Substance: DEXAMETHASONE
     Dosage: 8 MG, BEFORE CHEMOTHERAPY
     Route: 042
     Dates: start: 20160727
  11. ZANTAC [Concomitant]
     Active Substance: RANITIDINE HYDROCHLORIDE
     Dosage: UNK, BEFORE VECTIBIX
     Route: 042
     Dates: start: 20161103
  12. VECTIBIX [Suspect]
     Active Substance: PANITUMUMAB
     Dosage: 397 MG, IN 250 ML NACL FOR 1 HR (CYCLE 4 D15)
     Route: 042
     Dates: start: 20161117
  13. VECTIBIX [Suspect]
     Active Substance: PANITUMUMAB
     Dosage: 80% ADMINISTRATION (CYCLE 5 D1)
     Route: 042
     Dates: start: 20161124
  14. VECTIBIX [Suspect]
     Active Substance: PANITUMUMAB
     Dosage: 468 MG, CYCLE 2 D8 FOR 1 HR
     Route: 042
     Dates: start: 20160825
  15. VECTIBIX [Suspect]
     Active Substance: PANITUMUMAB
     Dosage: 392 MG, WITH 250 ML NACL FOR 1 HR (CYCLE 6 D1)
     Route: 042
     Dates: start: 20161215
  16. VECTIBIX [Suspect]
     Active Substance: PANITUMUMAB
     Dosage: 392 MG, WITH 250 ML NACL FOR 1 HR (CYCLE 6 D15)
     Route: 042
     Dates: start: 20161229, end: 20161229
  17. OXALIPLATIN. [Suspect]
     Active Substance: OXALIPLATIN
     Indication: METASTASES TO LIVER
     Dosage: 250 MG, 500 GLUC 5 % FOR 3 HR
     Route: 042
     Dates: start: 20161103
  18. OXALIPLATIN. [Suspect]
     Active Substance: OXALIPLATIN
     Dosage: 260 MG, 500 GLUC 5 % FOR 3 HR
     Route: 042
     Dates: start: 20161124
  19. ZOFRAN [Concomitant]
     Active Substance: ONDANSETRON HYDROCHLORIDE
     Dosage: 8 MG, BEFORE CHEMOTHERAPY
     Route: 042
     Dates: start: 20160727
  20. PASPERTIN [Concomitant]
     Active Substance: METOCLOPRAMIDE HYDROCHLORIDE
     Dosage: UNK UNK, AS NECESSARY
  21. VECTIBIX [Suspect]
     Active Substance: PANITUMUMAB
     Dosage: 468 MG, CYCLE 2 D1 FOR 1 HOUR
     Route: 042
     Dates: start: 20160818
  22. VECTIBIX [Suspect]
     Active Substance: PANITUMUMAB
     Dosage: 468 MG, CYCLE 1 D15 FOR 1 HR
     Route: 042
     Dates: start: 20160810
  23. XELODA [Suspect]
     Active Substance: CAPECITABINE
     Indication: METASTASES TO LIVER
  24. OXALIPLATIN. [Suspect]
     Active Substance: OXALIPLATIN
     Indication: ADENOCARCINOMA
     Dosage: 253.54 MG, 500 GLUC 5 % FOR 3 HR
     Route: 042
     Dates: start: 20160727, end: 20160929
  25. FORTECORTIN [Concomitant]
     Active Substance: DEXAMETHASONE
     Dosage: 8 MG, DAY 2 TO DAY 5
     Route: 048

REACTIONS (5)
  - Nail bed inflammation [Recovered/Resolved]
  - Dermatitis acneiform [Recovered/Resolved]
  - Malignant neoplasm progression [Unknown]
  - Skin toxicity [Unknown]
  - HIV test positive [Not Recovered/Not Resolved]

NARRATIVE: CASE EVENT DATE: 2016
